FAERS Safety Report 8087052-5 (Version None)
Quarter: 2012Q1

REPORT INFORMATION
  Report Type: 
  Country: None (occurrence: None)
  Receive Date: 20120128
  Receipt Date: 20110523
  Transmission Date: 20120608
  Serious: No
  Sender: FDA-Public Use
  Company Number: US-ABBOTT-11P-163-0727721-00

PATIENT
  Age: 56 Year
  Sex: Female

DRUGS (6)
  1. CRESTOR [Concomitant]
     Indication: BLOOD CHOLESTEROL INCREASED
     Route: 048
  2. FOLIC ACID [Concomitant]
     Indication: PRODUCT USED FOR UNKNOWN INDICATION
     Route: 048
  3. HUMIRA [Suspect]
     Indication: PSORIASIS
     Dates: start: 20110426
  4. AVALIDE [Concomitant]
     Indication: HYPERTENSION
     Route: 048
  5. ASPIRIN [Concomitant]
     Indication: HYPERTENSION
     Route: 048
  6. SYNTHROID [Concomitant]
     Indication: HYPOTHYROIDISM
     Route: 048

REACTIONS (4)
  - INJECTION SITE URTICARIA [None]
  - INJECTION SITE PAIN [None]
  - INJECTION SITE INDURATION [None]
  - INJECTION SITE HAEMORRHAGE [None]
